FAERS Safety Report 25277939 (Version 2)
Quarter: 2025Q2

REPORT INFORMATION
  Report Type: Spontaneous
  Country: CN (occurrence: CN)
  Receive Date: 20250507
  Receipt Date: 20250512
  Transmission Date: 20250717
  Serious: Yes (Hospitalization, Other)
  Sender: PFIZER
  Company Number: CN-MLMSERVICE-20250423-PI489132-00270-1

PATIENT
  Age: 78 Year
  Sex: Male

DRUGS (6)
  1. METHYLPREDNISOLONE [Suspect]
     Active Substance: METHYLPREDNISOLONE
     Indication: Felty^s syndrome
     Dosage: 20 MG, 1X/DAY
     Route: 048
     Dates: start: 20240426, end: 20240812
  2. METHYLPREDNISOLONE [Suspect]
     Active Substance: METHYLPREDNISOLONE
     Indication: Rheumatoid arthritis
  3. METHYLPREDNISOLONE SODIUM SUCCINATE [Suspect]
     Active Substance: METHYLPREDNISOLONE SODIUM SUCCINATE
     Indication: Felty^s syndrome
     Dosage: 20 MG, 1X/DAY
     Route: 042
     Dates: start: 20240412
  4. METHYLPREDNISOLONE SODIUM SUCCINATE [Suspect]
     Active Substance: METHYLPREDNISOLONE SODIUM SUCCINATE
     Indication: Rheumatoid arthritis
  5. IGURATIMOD [Concomitant]
     Active Substance: IGURATIMOD
     Indication: Felty^s syndrome
     Dosage: 25 MG, 2X/DAY
     Route: 048
     Dates: start: 20240412
  6. IGURATIMOD [Concomitant]
     Active Substance: IGURATIMOD
     Indication: Rheumatoid arthritis

REACTIONS (3)
  - Infectious pleural effusion [Recovering/Resolving]
  - Escherichia infection [Recovering/Resolving]
  - Atelectasis [Recovering/Resolving]

NARRATIVE: CASE EVENT DATE: 20240703
